FAERS Safety Report 7241123-1 (Version None)
Quarter: 2011Q1

REPORT INFORMATION
  Report Type: 
  Country: None (occurrence: None)
  Receive Date: 20110124
  Receipt Date: 20110106
  Transmission Date: 20110831
  Serious: No
  Sender: FDA-Public Use
  Company Number: US-B.I. PHARMACEUTICALS,INC./RIDGEFIELD-2010-BP-14053BP

PATIENT
  Sex: Female

DRUGS (2)
  1. NOVOLOG [Concomitant]
     Indication: DIABETES MELLITUS
     Route: 058
  2. SPIRIVA [Suspect]
     Indication: CHRONIC OBSTRUCTIVE PULMONARY DISEASE
     Dosage: 18 MCG
     Route: 055
     Dates: start: 20080101

REACTIONS (3)
  - EXTRASYSTOLES [None]
  - BLOOD GLUCOSE INCREASED [None]
  - DYSPNOEA [None]
